FAERS Safety Report 8216359-3 (Version None)
Quarter: 2012Q1

REPORT INFORMATION
  Report Type: 
  Country: None (occurrence: None)
  Receive Date: 20120316
  Receipt Date: 20120312
  Transmission Date: 20120608
  Serious: Yes (Hospitalization)
  Sender: FDA-Public Use
  Company Number: PHHY2012DE021571

PATIENT
  Sex: Female

DRUGS (3)
  1. GLEEVEC [Interacting]
     Dosage: 300 MG/DAY
     Route: 048
     Dates: start: 20051001
  2. GLEEVEC [Suspect]
     Indication: GASTROINTESTINAL STROMAL TUMOUR
     Dosage: 400 MG, DAY
     Route: 048
     Dates: start: 20050101
  3. IBUPROFEN TABLETS [Interacting]
     Indication: BACK DISORDER
     Dosage: 800 MG, QD

REACTIONS (10)
  - DRUG INTERACTION [None]
  - BACK DISORDER [None]
  - BACK PAIN [None]
  - FACE OEDEMA [None]
  - MUSCULOSKELETAL PAIN [None]
  - EYE OEDEMA [None]
  - RASH [None]
  - VOMITING [None]
  - MUSCULOSKELETAL DISCOMFORT [None]
  - TENDONITIS [None]
